FAERS Safety Report 25182310 (Version 1)
Quarter: 2025Q2

REPORT INFORMATION
  Report Type: Spontaneous
  Country: US (occurrence: US)
  Receive Date: 20250410
  Receipt Date: 20250410
  Transmission Date: 20250716
  Serious: No
  Sender: KINIKSA PHARMACEUTICALS
  Company Number: US-Kiniksa Pharmaceuticals Ltd.-2024KPU001158

PATIENT
  Age: 40 Year
  Sex: Female

DRUGS (2)
  1. ARCALYST [Suspect]
     Active Substance: RILONACEPT
     Indication: Pericarditis
     Dates: start: 202401
  2. GALCANEZUMAB [Concomitant]
     Active Substance: GALCANEZUMAB

REACTIONS (3)
  - Alopecia [Recovering/Resolving]
  - Blood iron decreased [Unknown]
  - Migraine [Unknown]

NARRATIVE: CASE EVENT DATE: 20240401
